FAERS Safety Report 17063462 (Version 1)
Quarter: 2019Q4

REPORT INFORMATION
  Report Type: Spontaneous
  Country: US (occurrence: US)
  Receive Date: 20191023
  Receipt Date: 20191023
  Transmission Date: 20200122
  Serious: Yes (Life-Threatening, Other)
  Sender: FDA-Public Use
  Company Number: None

PATIENT
  Age: 46 Year
  Sex: Female
  Weight: 87.2 kg

DRUGS (2)
  1. TAMOXIFEN [Concomitant]
     Active Substance: TAMOXIFEN
  2. TAMOXIFEN 20MG [Suspect]
     Active Substance: TAMOXIFEN
     Indication: PULMONARY HYPERTENSION
     Dates: start: 20190910, end: 20191001

REACTIONS (7)
  - Hot flush [None]
  - Hyperhidrosis [None]
  - Psychotic disorder [None]
  - Legal problem [None]
  - Oxygen saturation increased [None]
  - Aggression [None]
  - Pyromania [None]

NARRATIVE: CASE EVENT DATE: 20191001
